FAERS Safety Report 16529539 (Version 3)
Quarter: 2019Q4

REPORT INFORMATION
  Report Type: Report from Study
  Country: US (occurrence: US)
  Receive Date: 20190703
  Receipt Date: 20191030
  Transmission Date: 20200122
  Serious: Yes (Other)
  Sender: FDA-Public Use
  Company Number: US-BEH-2019104099

PATIENT
  Age: 58 Year
  Sex: Female

DRUGS (2)
  1. BERINERT [Suspect]
     Active Substance: HUMAN C1-ESTERASE INHIBITOR
     Indication: HEREDITARY ANGIOEDEMA
     Dosage: 1500 INTERNATIONAL UNIT, EVERY 2 DAYS PRN
     Route: 042
     Dates: start: 20190113
  2. BERINERT [Suspect]
     Active Substance: HUMAN C1-ESTERASE INHIBITOR
     Indication: HEREDITARY ANGIOEDEMA
     Dosage: 1500 INTERNATIONAL UNIT, EVERY 2 DAYS PRN
     Route: 042
     Dates: start: 20190113

REACTIONS (5)
  - Delusion [Unknown]
  - Hereditary angioedema [Unknown]
  - Feeling abnormal [Unknown]
  - Confusional state [Unknown]
  - Dizziness [Unknown]
